FAERS Safety Report 16061946 (Version 1)
Quarter: 2019Q2

REPORT INFORMATION
  Report Type: Spontaneous
  Country: US (occurrence: US)
  Receive Date: 20190312
  Receipt Date: 20190312
  Transmission Date: 20190711
  Serious: Yes (Hospitalization)
  Sender: FDA-Public Use
  Company Number: None

PATIENT
  Age: 33 Year
  Sex: Female
  Weight: 56.7 kg

DRUGS (1)
  1. PARAGARD T 380A [Suspect]
     Active Substance: COPPER

REACTIONS (6)
  - Maternal condition affecting foetus [None]
  - Device dislocation [None]
  - Embedded device [None]
  - Pregnancy with contraceptive device [None]
  - Complication of device removal [None]
  - Caesarean section [None]

NARRATIVE: CASE EVENT DATE: 20180904
